FAERS Safety Report 12051971 (Version 2)
Quarter: 2018Q4

REPORT INFORMATION
  Report Type: Report from Study
  Country: US (occurrence: US)
  Receive Date: 20160209
  Receipt Date: 20181102
  Transmission Date: 20190204
  Serious: No
  Sender: FDA-Public Use
  Company Number: US-AMGEN-USASL2016012175

PATIENT
  Age: 58 Year
  Sex: Female
  Weight: 45.35 kg

DRUGS (1)
  1. ENBREL [Suspect]
     Active Substance: ETANERCEPT
     Indication: RHEUMATOID ARTHRITIS
     Dosage: 50 MG, QWK ON MONDAYS
     Route: 065
     Dates: start: 2014

REACTIONS (8)
  - Injection site mass [Not Recovered/Not Resolved]
  - Skin ulcer [Unknown]
  - Injection site erythema [Not Recovered/Not Resolved]
  - Injection site pain [Not Recovered/Not Resolved]
  - Injection site pruritus [Not Recovered/Not Resolved]
  - Injection site swelling [Not Recovered/Not Resolved]
  - Fatigue [Unknown]
  - Feeling cold [Unknown]
